FAERS Safety Report 17231704 (Version 1)
Quarter: 2020Q1

REPORT INFORMATION
  Report Type: Spontaneous
  Country: US (occurrence: US)
  Receive Date: 20200103
  Receipt Date: 20200103
  Transmission Date: 20200409
  Serious: No
  Sender: FDA-Public Use
  Company Number: US-PFIZER INC-2019562036

PATIENT
  Age: 56 Year
  Sex: Female
  Weight: 58.97 kg

DRUGS (2)
  1. NICOTINE TRANSDERMAL SYSTEM [Suspect]
     Active Substance: NICOTINE
     Indication: SMOKING CESSATION THERAPY
     Dosage: 14 MG, DAILY (PATCH APPLIED TOPICALLY TO SKIN OF HIP AND CHANGED EVERY 24 HOURS)
     Route: 061
     Dates: start: 20191230
  2. NICOTROL [Suspect]
     Active Substance: NICOTINE
     Indication: SMOKING CESSATION THERAPY
     Dosage: 10 MG, AS NEEDED (WHEN SMOKING CRAVING OCCURS)
     Dates: start: 20191230

REACTIONS (4)
  - Nausea [Unknown]
  - Feeling jittery [Unknown]
  - Nasopharyngitis [Recovering/Resolving]
  - Product taste abnormal [Unknown]

NARRATIVE: CASE EVENT DATE: 20191230
